FAERS Safety Report 5511829-0 (Version None)
Quarter: 2007Q4

REPORT INFORMATION
  Report Type: 
  Country: None (occurrence: None)
  Receive Date: 20071109
  Receipt Date: 20071105
  Transmission Date: 20080405
  Serious: Yes (Other)
  Sender: FDA-Public Use
  Company Number: GB-BOEHRINGER INGELHEIM PHARMACEUTICALS, INC.-2007-DE-06588GD

PATIENT
  Age: 64 Year
  Sex: Female

DRUGS (5)
  1. TIOTROPIUM-BROMIDE [Suspect]
     Indication: CHRONIC OBSTRUCTIVE PULMONARY DISEASE
     Route: 055
     Dates: start: 20031205
  2. CO-PROXAMOL [Concomitant]
  3. TOLTERODINE TARTRATE [Concomitant]
  4. DIDRONEL [Concomitant]
  5. CACIT [Concomitant]

REACTIONS (3)
  - CHRONIC OBSTRUCTIVE PULMONARY DISEASE [None]
  - CONDITION AGGRAVATED [None]
  - HAEMOPTYSIS [None]
